FAERS Safety Report 7600673-6 (Version None)
Quarter: 2011Q3

REPORT INFORMATION
  Report Type: 
  Country: None (occurrence: None)
  Receive Date: 20110711
  Receipt Date: 20110706
  Transmission Date: 20111222
  Serious: Yes (Death)
  Sender: FDA-Public Use
  Company Number: BR-ROCHE-787949

PATIENT
  Age: 89 Year
  Sex: Male
  Weight: 87 kg

DRUGS (4)
  1. ROCEPHIN [Suspect]
     Route: 030
  2. DERSANI [Concomitant]
  3. VITAMIN B COMPLEX CAP [Concomitant]
  4. PHENOBARBITAL TAB [Concomitant]

REACTIONS (1)
  - DEATH [None]
